FAERS Safety Report 4590999-5 (Version None)
Quarter: 2005Q1

REPORT INFORMATION
  Report Type: 
  Country: None (occurrence: None)
  Receive Date: 20050222
  Receipt Date: 20050222
  Transmission Date: 20050727
  Serious: Yes (Other)
  Sender: FDA-Public Use
  Company Number: None

PATIENT
  Sex: Male
  Weight: 56.6996 kg

DRUGS (2)
  1. ZOLOFT [Suspect]
     Indication: ANXIETY
     Dosage: 1   MORNINGS  ORAL
     Route: 048
     Dates: start: 20030101, end: 20050201
  2. ZOLOFT [Suspect]
     Indication: OBSESSIVE-COMPULSIVE DISORDER
     Dosage: 1   MORNINGS  ORAL
     Route: 048
     Dates: start: 20030101, end: 20050201

REACTIONS (5)
  - ABNORMAL BEHAVIOUR [None]
  - AGGRESSION [None]
  - DIZZINESS [None]
  - FEELING ABNORMAL [None]
  - HOSTILITY [None]
